FAERS Safety Report 13340872 (Version 2)
Quarter: 2017Q1

REPORT INFORMATION
  Report Type: Spontaneous
  Country: IT (occurrence: IT)
  Receive Date: 20170316
  Receipt Date: 20170328
  Transmission Date: 20170428
  Serious: Yes (Life-Threatening)
  Sender: FDA-Public Use
  Company Number: IT-AUROBINDO-AUR-APL-2017-30969

PATIENT
  Age: 82 Year
  Sex: Female
  Weight: 50 kg

DRUGS (6)
  1. CITALOPRAM [Concomitant]
     Active Substance: CITALOPRAM HYDROBROMIDE
     Indication: DEPRESSION
     Dosage: 20 MG, UNK
     Dates: end: 20170223
  2. BISOPROLOL FILM-COATED TABLETS 2.5MG [Interacting]
     Active Substance: BISOPROLOL FUMARATE
     Indication: HYPERTENSION
     Dosage: 2.5 MG, DAILY
     Route: 048
     Dates: end: 20170224
  3. RAMIPRIL 5 MG TABLET [Suspect]
     Active Substance: RAMIPRIL
     Indication: HYPERTENSION
     Dosage: 5 MG, DAILY
     Route: 048
     Dates: end: 20170224
  4. LASIX [Suspect]
     Active Substance: FUROSEMIDE
     Indication: DIURETIC THERAPY
     Dosage: 75 MG, DAILY
     Route: 048
     Dates: end: 20170224
  5. CREON [Concomitant]
     Active Substance: PANCRELIPASE AMYLASE\PANCRELIPASE LIPASE\PANCRELIPASE PROTEASE
     Indication: PANCREATIC CARCINOMA
     Dosage: 30000 DF, UNK
     Route: 048
     Dates: end: 20170224
  6. ALDACTONE [Interacting]
     Active Substance: SPIRONOLACTONE
     Indication: DIURETIC THERAPY
     Dosage: 100 MG, DAILY
     Route: 048
     Dates: end: 20170224

REACTIONS (6)
  - Fall [Recovering/Resolving]
  - Drug interaction [Recovering/Resolving]
  - Hyperkalaemia [Recovering/Resolving]
  - Hypotension [Recovering/Resolving]
  - Asthenia [Recovering/Resolving]
  - Dyspnoea [Recovering/Resolving]

NARRATIVE: CASE EVENT DATE: 20170224
